FAERS Safety Report 16909291 (Version 1)
Quarter: 2019Q4

REPORT INFORMATION
  Report Type: Spontaneous
  Country: US (occurrence: US)
  Receive Date: 20191011
  Receipt Date: 20191011
  Transmission Date: 20200122
  Serious: Yes (Death, Other)
  Sender: FDA-Public Use
  Company Number: US-PFIZER INC-2019435111

PATIENT
  Age: 65 Year
  Sex: Female

DRUGS (1)
  1. IBRANCE [Suspect]
     Active Substance: PALBOCICLIB
     Indication: BREAST CANCER METASTATIC
     Dosage: 125 MG, UNK
     Dates: start: 201902, end: 201902

REACTIONS (4)
  - Neoplasm progression [Fatal]
  - Septic shock [Fatal]
  - Sepsis [Unknown]
  - Liver injury [Unknown]

NARRATIVE: CASE EVENT DATE: 20190503
